FAERS Safety Report 7045034-6 (Version None)
Quarter: 2010Q4

REPORT INFORMATION
  Report Type: 
  Country: None (occurrence: None)
  Receive Date: 20101008
  Receipt Date: 20101008
  Transmission Date: 20110411
  Serious: Yes (Hospitalization, Other)
  Sender: FDA-Public Use
  Company Number: None

PATIENT
  Age: 70 Year
  Sex: Male
  Weight: 109.3169 kg

DRUGS (1)
  1. LOVENOX [Suspect]
     Indication: PULMONARY EMBOLISM
     Dosage: 110 MG BID SQ
     Route: 058
     Dates: start: 20101002, end: 20101006

REACTIONS (7)
  - ABDOMINAL MASS [None]
  - ABDOMINAL PAIN [None]
  - CONTUSION [None]
  - HICCUPS [None]
  - MALAISE [None]
  - MUSCLE HAEMORRHAGE [None]
  - RETCHING [None]
